FAERS Safety Report 20267684 (Version 2)
Quarter: 2022Q1

REPORT INFORMATION
  Report Type: Spontaneous
  Country: US (occurrence: US)
  Receive Date: 20211231
  Receipt Date: 20220111
  Transmission Date: 20220423
  Serious: Yes (Death)
  Sender: FDA-Public Use
  Company Number: US-CELGENE-USA-20211209334

PATIENT
  Age: 84 Year
  Sex: Male

DRUGS (2)
  1. POMALYST [Suspect]
     Active Substance: POMALIDOMIDE
     Indication: Chronic lymphocytic leukaemia
     Dosage: 2 MILLIGRAM
     Route: 048
     Dates: start: 201704
  2. POMALYST [Suspect]
     Active Substance: POMALIDOMIDE
     Dosage: 2 MILLIGRAM
     Route: 048
     Dates: start: 201801, end: 20211112

REACTIONS (1)
  - Death [Fatal]

NARRATIVE: CASE EVENT DATE: 20211112
